FAERS Safety Report 16384251 (Version 2)
Quarter: 2019Q3

REPORT INFORMATION
  Report Type: Report from Study
  Country: CA (occurrence: CA)
  Receive Date: 20190603
  Receipt Date: 20190910
  Transmission Date: 20191004
  Serious: Yes (Other)
  Sender: FDA-Public Use
  Company Number: CA-JNJFOC-20190531912

PATIENT
  Age: 2 Decade
  Sex: Female
  Weight: 54.48 kg

DRUGS (1)
  1. STELARA [Suspect]
     Active Substance: USTEKINUMAB
     Indication: PSORIASIS
     Route: 058
     Dates: start: 201706

REACTIONS (2)
  - Peritonsillar abscess [Unknown]
  - Tonsillolith [Unknown]

NARRATIVE: CASE EVENT DATE: 2018
